FAERS Safety Report 7110225-2 (Version None)
Quarter: 2010Q4

REPORT INFORMATION
  Report Type: 
  Country: None (occurrence: None)
  Receive Date: 20101117
  Receipt Date: 20101117
  Transmission Date: 20110411
  Serious: Yes (Other)
  Sender: FDA-Public Use
  Company Number: None

PATIENT
  Age: 40 Year
  Sex: Male
  Weight: 67.1324 kg

DRUGS (2)
  1. DOXYCYCLINE [Suspect]
     Indication: LYME DISEASE
     Dosage: 100 MG ONCE ORAL
     Route: 048
     Dates: start: 20101102
  2. NEXIUM [Concomitant]

REACTIONS (4)
  - DIZZINESS [None]
  - EYE PRURITUS [None]
  - EYE SWELLING [None]
  - PRESYNCOPE [None]
